FAERS Safety Report 7831693-4 (Version None)
Quarter: 2011Q4

REPORT INFORMATION
  Report Type: 
  Country: None (occurrence: None)
  Receive Date: 20111021
  Receipt Date: 20111018
  Transmission Date: 20120403
  Serious: Yes (Hospitalization)
  Sender: FDA-Public Use
  Company Number: GB-JNJFOC-20111007620

PATIENT
  Age: 37 Year
  Sex: Male

DRUGS (4)
  1. IBUPROFEN [Suspect]
     Indication: BACK PAIN
     Route: 048
     Dates: start: 20110601, end: 20110930
  2. IBUPROFEN [Suspect]
     Route: 048
  3. DICLOFENAC [Suspect]
     Indication: BACK PAIN
     Route: 048
     Dates: start: 20090501, end: 20110930
  4. AMITRIPTYLINE HCL [Concomitant]

REACTIONS (7)
  - DUODENITIS [None]
  - ABDOMINAL PAIN UPPER [None]
  - GASTRITIS [None]
  - MELAENA [None]
  - ABDOMINAL PAIN [None]
  - HELICOBACTER INFECTION [None]
  - PEPTIC ULCER [None]
